FAERS Safety Report 8460193-6 (Version None)
Quarter: 2012Q2

REPORT INFORMATION
  Report Type: 
  Country: None (occurrence: None)
  Receive Date: 20120622
  Receipt Date: 20120612
  Transmission Date: 20120825
  Serious: Yes (Hospitalization, Other)
  Sender: FDA-Public Use
  Company Number: US-ELI_LILLY_AND_COMPANY-US201109006290

PATIENT
  Sex: Female

DRUGS (9)
  1. FORTEO [Suspect]
     Dosage: 20 UG, QD
     Dates: start: 20110701
  2. MAGNESIUM [Concomitant]
  3. CALCIUM [Concomitant]
  4. FORTEO [Suspect]
     Indication: OSTEOPOROSIS
     Dosage: 20 UG, QD
     Dates: start: 20110701
  5. FORTEO [Suspect]
     Dosage: 20 UG, QD
     Dates: start: 20110701
  6. DAYPRO [Concomitant]
  7. FORTEO [Suspect]
     Dosage: 20 UG, QD
     Dates: start: 20110701
  8. VITAMIN D [Concomitant]
  9. HYZAAR [Concomitant]

REACTIONS (7)
  - VITAMIN D DECREASED [None]
  - ARTHRALGIA [None]
  - WRIST FRACTURE [None]
  - BLOOD CALCIUM DECREASED [None]
  - BLOOD MAGNESIUM DECREASED [None]
  - FALL [None]
  - INTESTINAL PERFORATION [None]
